FAERS Safety Report 8559255-4 (Version None)
Quarter: 2012Q3

REPORT INFORMATION
  Report Type: 
  Country: None (occurrence: None)
  Receive Date: 20120802
  Receipt Date: 20120725
  Transmission Date: 20120928
  Serious: Yes (Death, Hospitalization)
  Sender: FDA-Public Use
  Company Number: US-CELGENEUS-163-21880-12072696

PATIENT
  Age: 79 Year
  Sex: Male
  Weight: 75.11 kg

DRUGS (8)
  1. ASPIRIN [Concomitant]
     Dosage: 325 MILLIGRAM
     Route: 048
     Dates: start: 20100414
  2. REVLIMID [Suspect]
     Indication: MULTIPLE MYELOMA
     Dosage: 10 MILLIGRAM
     Route: 048
     Dates: start: 20100414
  3. REVLIMID [Suspect]
     Dosage: 10 MILLIGRAM
     Route: 048
     Dates: start: 20110302, end: 20110322
  4. MELPHALAN HYDROCHLORIDE [Suspect]
     Indication: MULTIPLE MYELOMA
     Dosage: 5 MILLIGRAM/SQ. METER
     Route: 048
     Dates: start: 20100414
  5. MELPHALAN HYDROCHLORIDE [Suspect]
     Dosage: 5 MILLIGRAM/SQ. METER
     Route: 048
     Dates: start: 20110302, end: 20110305
  6. PREDNISONE [Suspect]
     Indication: MULTIPLE MYELOMA
     Dosage: 100 MILLIGRAM
     Route: 048
     Dates: start: 20110414
  7. PREDNISONE [Suspect]
     Dosage: 100 MILLIGRAM
     Route: 048
     Dates: start: 20110302, end: 20110305
  8. ZOMETA [Concomitant]
     Route: 065

REACTIONS (1)
  - PERIPHERAL T-CELL LYMPHOMA UNSPECIFIED [None]
